FAERS Safety Report 9356293 (Version 1)
Quarter: 2013Q2

REPORT INFORMATION
  Report Type: Spontaneous
  Country: IT (occurrence: IT)
  Receive Date: 20130619
  Receipt Date: 20130619
  Transmission Date: 20140414
  Serious: Yes (Hospitalization)
  Sender: FDA-Public Use
  Company Number: IT-BAYER-2013-074934

PATIENT
  Age: 85 Year
  Sex: Female

DRUGS (10)
  1. ACETYLSALICYLIC ACID({=100 MG) [Suspect]
     Indication: MYOCARDIAL ISCHAEMIA
     Dosage: DAILY DOSE 100 MG
     Route: 048
     Dates: start: 20110101, end: 20121024
  2. COUMADIN [Suspect]
     Indication: ATRIAL FIBRILLATION
     Dosage: 5 MG, PRN
     Route: 048
     Dates: start: 20110101, end: 20121024
  3. FUROSEMIDE [Concomitant]
  4. ALDACTONE [SPIRONOLACTONE] [Concomitant]
  5. TRIATEC [Concomitant]
  6. CONGESCOR [Concomitant]
  7. LANOXIN [Concomitant]
  8. ANTRA [Concomitant]
  9. SPIRIVA [Concomitant]
     Route: 055
  10. ZYLORIC [Concomitant]

REACTIONS (1)
  - Anaemia [Recovering/Resolving]
